FAERS Safety Report 5346735-8 (Version None)
Quarter: 2007Q2

REPORT INFORMATION
  Report Type: 
  Country: None (occurrence: None)
  Receive Date: 20070503
  Receipt Date: 20060809
  Transmission Date: 20071010
  Serious: Yes (Hospitalization, Other)
  Sender: FDA-Public Use
  Company Number: 29726

PATIENT
  Age: 68 Year
  Sex: Female
  Weight: 59.4212 kg

DRUGS (1)
  1. LEUCOVORIN CALCIUM [Suspect]
     Indication: BILIARY NEOPLASM
     Dosage: 25MG/M2, X5DAYS, IV
     Route: 042
     Dates: start: 20060430

REACTIONS (2)
  - INFECTION [None]
  - NEUTROPENIA [None]
